FAERS Safety Report 4470511-1 (Version None)
Quarter: 2004Q4

REPORT INFORMATION
  Report Type: 
  Country: None (occurrence: None)
  Receive Date: 20041001
  Receipt Date: 20040917
  Transmission Date: 20050328
  Serious: Yes (Other)
  Sender: FDA-Public Use
  Company Number: TNZIE200400107

PATIENT
  Age: 36 Year
  Sex: Female

DRUGS (1)
  1. INNOHEP [Suspect]
     Indication: DEEP VENOUS THROMBOSIS PROPHYLAXIS
     Dosage: 75 IU/KG DAILY, SUBCUTANEOUS
     Route: 058
     Dates: start: 20040909, end: 20040920

REACTIONS (4)
  - DRUG EXPOSURE DURING PREGNANCY [None]
  - FEELING HOT [None]
  - INSOMNIA [None]
  - PARAESTHESIA [None]
